FAERS Safety Report 9381818 (Version 1)
Quarter: 2013Q3

REPORT INFORMATION
  Report Type: Spontaneous
  Country: BR (occurrence: BR)
  Receive Date: 20130703
  Receipt Date: 20130703
  Transmission Date: 20140515
  Serious: Yes (Hospitalization, Other)
  Sender: FDA-Public Use
  Company Number: PHHY2013BR068655

PATIENT
  Age: 84 Year
  Sex: Male

DRUGS (2)
  1. APRESOLIN [Suspect]
     Indication: HYPERTENSION
     Dosage: 2 DF, (50 MG) DAILY
     Route: 048
  2. HYDROCHLOROTHIAZIDE [Suspect]

REACTIONS (5)
  - Thrombosis [Recovering/Resolving]
  - Erythema [Recovering/Resolving]
  - Peripheral vascular disorder [Recovering/Resolving]
  - Local swelling [Recovering/Resolving]
  - Erysipelas [Recovered/Resolved]
